FAERS Safety Report 8813090 (Version 1)
Quarter: 2012Q4

REPORT INFORMATION
  Report Type: 
  Country: US (occurrence: US)
  Receive Date: 20120927
  Receipt Date: 20120927
  Transmission Date: 20130627
  Serious: No
  Sender: FDA-Public Use
  Company Number: US-AMGEN-USASP2012050282

PATIENT
  Age: 67 Year
  Sex: Female
  Weight: 58.96 kg

DRUGS (3)
  1. PROLIA [Suspect]
     Indication: OSTEOPOROSIS POSTMENOPAUSAL
     Dosage: 60 mg, q6mo
     Route: 058
     Dates: start: 20120329, end: 20120329
  2. PRILOSEC                           /00661201/ [Concomitant]
     Dosage: 20 mg, qd
     Route: 048
  3. CELEXA                             /00582602/ [Concomitant]
     Dosage: 20 mg, qhs
     Route: 048

REACTIONS (4)
  - Lip dry [Recovered/Resolved]
  - Chapped lips [Recovered/Resolved]
  - Skin exfoliation [Unknown]
  - Rash [Recovered/Resolved]
